FAERS Safety Report 4610862-0 (Version None)
Quarter: 2005Q1

REPORT INFORMATION
  Report Type: 
  Country: None (occurrence: None)
  Receive Date: 20050301
  Receipt Date: 20041117
  Transmission Date: 20050727
  Serious: No
  Sender: FDA-Public Use
  Company Number: MPS1-10303

PATIENT
  Age: 45 Year
  Sex: Female

DRUGS (1)
  1. ALDURAZYME [Suspect]
     Dosage: 34.8 MG QWK IV
     Route: 042
     Dates: start: 20030601, end: 20030601

REACTIONS (1)
  - ADJUSTMENT DISORDER [None]
